FAERS Safety Report 6751897-1 (Version None)
Quarter: 2010Q2

REPORT INFORMATION
  Report Type: 
  Country: None (occurrence: None)
  Receive Date: 20100526
  Receipt Date: 20100408
  Transmission Date: 20101027
  Serious: No
  Sender: FDA-Public Use
  Company Number: 307077

PATIENT
  Age: 53 Year
  Sex: Male

DRUGS (2)
  1. VICTOZA INJECTION (LIRAGLUTIDE) SOLUTION FOR INJECTION, 6MG/ML [Suspect]
     Indication: TYPE 2 DIABETES MELLITUS
     Dosage: , SUBCUTANEOUS
     Route: 058
     Dates: start: 20100407
  2. LEVEMIR [Concomitant]

REACTIONS (1)
  - NAUSEA [None]
